FAERS Safety Report 12698614 (Version 1)
Quarter: 2016Q3

REPORT INFORMATION
  Report Type: Spontaneous
  Country: US (occurrence: US)
  Receive Date: 20160830
  Receipt Date: 20160830
  Transmission Date: 20161109
  Serious: No
  Sender: FDA-Public Use
  Company Number: US-009507513-1608USA008951

PATIENT
  Sex: Female

DRUGS (1)
  1. NEXPLANON [Suspect]
     Active Substance: ETONOGESTREL
     Dosage: 1 SINGLE ROD
     Dates: start: 20160426

REACTIONS (3)
  - Occupational exposure to product [Unknown]
  - Injury associated with device [Unknown]
  - Product quality issue [Unknown]

NARRATIVE: CASE EVENT DATE: 20160426
